FAERS Safety Report 14978443 (Version 1)
Quarter: 2018Q2

REPORT INFORMATION
  Report Type: Spontaneous
  Country: RU (occurrence: RU)
  Receive Date: 20180606
  Receipt Date: 20180606
  Transmission Date: 20180711
  Serious: Yes (Other)
  Sender: FDA-Public Use
  Company Number: RU-ROCHE-2130114

PATIENT
  Age: 65 Year
  Sex: Female

DRUGS (1)
  1. VISMODEGIB. [Suspect]
     Active Substance: VISMODEGIB
     Indication: NEOPLASM MALIGNANT
     Route: 065

REACTIONS (3)
  - Dysgeusia [Unknown]
  - Seizure [Unknown]
  - Alopecia [Unknown]
